FAERS Safety Report 4867156-8 (Version None)
Quarter: 2005Q4

REPORT INFORMATION
  Report Type: 
  Country: None (occurrence: None)
  Receive Date: 20051222
  Receipt Date: 20051209
  Transmission Date: 20060501
  Serious: Yes (Hospitalization, Other)
  Sender: FDA-Public Use
  Company Number: 2005P1000547

PATIENT
  Age: 57 Year
  Sex: Male
  Weight: 98 kg

DRUGS (14)
  1. RETEPLASE (RETEPLASE) [Suspect]
     Indication: ACUTE MYOCARDIAL INFARCTION
  2. ABCIXIMAB (ABCIXIMAB) [Suspect]
  3. ASCAL [Concomitant]
  4. SIMVASTATIN [Concomitant]
  5. METOPROLOL TARTRATE [Concomitant]
  6. METFORMIN [Concomitant]
  7. CLOPIDOGREL [Concomitant]
  8. GLIBENCLAMIDE [Concomitant]
  9. SOTALOL HCL [Concomitant]
  10. SULFASALAZINE [Concomitant]
  11. PANTOPRAZOLE [Concomitant]
  12. ENOXAPARIN SODIUM [Concomitant]
  13. RANITIDINE [Concomitant]
  14. UROSCHOL [Concomitant]

REACTIONS (4)
  - ATRIAL FIBRILLATION [None]
  - CARDIOMEGALY [None]
  - CORONARY ARTERY SURGERY [None]
  - POST PROCEDURAL COMPLICATION [None]
